FAERS Safety Report 6999840-4 (Version None)
Quarter: 2010Q3

REPORT INFORMATION
  Report Type: 
  Country: None (occurrence: None)
  Receive Date: 20100920
  Receipt Date: 20100331
  Transmission Date: 20110219
  Serious: No
  Sender: FDA-Public Use
  Company Number: US-ASTRAZENECA-2010SE20035

PATIENT
  Age: 16127 Day
  Sex: Male

DRUGS (2)
  1. SEROQUEL [Suspect]
     Dosage: 600MG-800MG AT NIGHT
     Route: 048
     Dates: start: 20070925
  2. FLUOXETINE [Concomitant]
     Indication: DEPRESSION
     Dosage: 40NG-60MG EVERY MORNING
     Route: 048
     Dates: start: 20070925

REACTIONS (2)
  - DIABETES MELLITUS [None]
  - MAJOR DEPRESSION [None]
